FAERS Safety Report 4562656-2 (Version None)
Quarter: 2005Q1

REPORT INFORMATION
  Report Type: 
  Country: None (occurrence: None)
  Receive Date: 20050124
  Receipt Date: 20050114
  Transmission Date: 20050727
  Serious: Yes (Other)
  Sender: FDA-Public Use
  Company Number: 2004105744

PATIENT
  Age: 56 Year
  Sex: Female

DRUGS (1)
  1. CABERGOLINE [Suspect]
     Indication: PARKINSON'S DISEASE
     Dosage: 9 MG , ORAL
     Route: 048
     Dates: start: 20030901

REACTIONS (4)
  - AORTIC VALVE DISEASE [None]
  - FIBROSIS [None]
  - MITRAL VALVE DISEASE [None]
  - TRICUSPID VALVE DISEASE [None]
